FAERS Safety Report 17789501 (Version 1)
Quarter: 2020Q2

REPORT INFORMATION
  Report Type: Spontaneous
  Country: CN (occurrence: CN)
  Receive Date: 20200514
  Receipt Date: 20200514
  Transmission Date: 20200714
  Serious: Yes (Hospitalization, Other)
  Sender: FDA-Public Use
  Company Number: CN-009507513-2005CHN003131

PATIENT
  Age: 47 Year
  Sex: Male
  Weight: 68 kg

DRUGS (4)
  1. EZETROL [Suspect]
     Active Substance: EZETIMIBE
     Indication: HYPERLIPIDAEMIA
     Dosage: 10 UNK, QD, PO
     Route: 048
     Dates: start: 20200320, end: 20200428
  2. JANUVIA [Suspect]
     Active Substance: SITAGLIPTIN PHOSPHATE
     Indication: DIABETES MELLITUS
     Dosage: 100 UNK, QD, PO
     Route: 048
     Dates: start: 20200320, end: 20200428
  3. ALLISARTAN ISOPROXIL [Suspect]
     Active Substance: ALLISARTAN ISOPROXIL
     Indication: HYPERTENSION
     Dosage: 240 MILLIGRAM, QD, PO
     Route: 048
     Dates: start: 20200320, end: 20200328
  4. FENOFIBRATE. [Suspect]
     Active Substance: FENOFIBRATE
     Indication: HYPERLIPIDAEMIA
     Dosage: 0.2 GRAM, QD, PO
     Route: 048
     Dates: start: 20200320, end: 20200428

REACTIONS (7)
  - Breath odour [Recovering/Resolving]
  - Hepatic function abnormal [Recovering/Resolving]
  - Chronic hepatitis B [Unknown]
  - Decreased appetite [Unknown]
  - Dry mouth [Recovering/Resolving]
  - Abdominal distension [Recovering/Resolving]
  - Drug-induced liver injury [Unknown]

NARRATIVE: CASE EVENT DATE: 20200425
